FAERS Safety Report 10103289 (Version 1)
Quarter: 2014Q2

REPORT INFORMATION
  Report Type: Spontaneous
  Country: US (occurrence: US)
  Receive Date: 20140424
  Receipt Date: 20140424
  Transmission Date: 20141212
  Serious: No
  Sender: FDA-Public Use
  Company Number: US-BRISTOL-MYERS SQUIBB COMPANY-20215216

PATIENT
  Age: 84 Year
  Sex: Male
  Weight: 79.36 kg

DRUGS (11)
  1. ELIQUIS [Suspect]
     Dates: start: 20140204, end: 20140208
  2. IRON [Concomitant]
  3. HCTZ [Concomitant]
  4. CLONIDINE [Concomitant]
  5. LISINOPRIL [Concomitant]
  6. COREG [Concomitant]
  7. PLAVIX [Concomitant]
     Dates: start: 20140204
  8. PRAVASTATIN SODIUM [Concomitant]
  9. PROTONIX [Concomitant]
  10. LUTEIN [Concomitant]
     Indication: RETINAL DISORDER
  11. LUTEIN [Concomitant]
     Indication: CATARACT

REACTIONS (2)
  - Dry skin [Recovering/Resolving]
  - Pruritus [Recovering/Resolving]
